FAERS Safety Report 18785312 (Version 1)
Quarter: 2021Q1

REPORT INFORMATION
  Report Type: Spontaneous
  Country: US (occurrence: US)
  Receive Date: 20210125
  Receipt Date: 20210125
  Transmission Date: 20210419
  Serious: No
  Sender: FDA-Public Use
  Company Number: US-PFIZER INC-2021041377

PATIENT
  Age: 60 Year
  Sex: Female

DRUGS (1)
  1. XELJANZ [Suspect]
     Active Substance: TOFACITINIB CITRATE
     Indication: RHEUMATOID ARTHRITIS
     Dosage: 10 MG, DAILY
     Route: 048
     Dates: start: 20201201

REACTIONS (8)
  - Therapeutic product effect incomplete [Unknown]
  - Acne cystic [Unknown]
  - Insomnia [Unknown]
  - Feeling jittery [Unknown]
  - Hunger [Unknown]
  - Intentional product misuse [Unknown]
  - Condition aggravated [Unknown]
  - Therapeutic response unexpected [Unknown]
